FAERS Safety Report 5995803-6 (Version None)
Quarter: 2008Q4

REPORT INFORMATION
  Report Type: 
  Country: None (occurrence: None)
  Receive Date: 20081212
  Receipt Date: 20081203
  Transmission Date: 20090506
  Serious: Yes (Hospitalization)
  Sender: FDA-Public Use
  Company Number: JP-JNJFOC-20081201570

PATIENT
  Age: 8 Decade
  Sex: Male

DRUGS (6)
  1. REMICADE [Suspect]
     Route: 042
  2. REMICADE [Suspect]
     Indication: RHEUMATOID ARTHRITIS
     Route: 042
  3. METHOTREXATE [Suspect]
     Indication: RHEUMATOID ARTHRITIS
     Route: 048
  4. ANTIBIOTIC [Concomitant]
  5. ACTARIT [Concomitant]
  6. SULFASALAZINE [Concomitant]
     Route: 048

REACTIONS (3)
  - AORTIC ANEURYSM [None]
  - PLEURAL EFFUSION [None]
  - PYREXIA [None]
